FAERS Safety Report 5753999-5 (Version None)
Quarter: 2008Q2

REPORT INFORMATION
  Report Type: 
  Country: None (occurrence: None)
  Receive Date: 20080527
  Receipt Date: 20080527
  Transmission Date: 20081010
  Serious: Yes (Other)
  Sender: FDA-Public Use
  Company Number: None

PATIENT
  Sex: Male
  Weight: 54.4316 kg

DRUGS (4)
  1. SINGULAIR [Suspect]
     Indication: ASTHMA
     Dosage: 5MG DAILY PO
     Route: 048
     Dates: start: 20030107, end: 20030307
  2. SINGULAIR [Suspect]
     Indication: MULTIPLE ALLERGIES
     Dosage: 5MG DAILY PO
     Route: 048
     Dates: start: 20030107, end: 20030307
  3. SINGULAIR [Suspect]
     Indication: ASTHMA
     Dosage: 5MG DAILY PO
     Route: 048
     Dates: start: 20060702, end: 20080501
  4. SINGULAIR [Suspect]
     Indication: MULTIPLE ALLERGIES
     Dosage: 5MG DAILY PO
     Route: 048
     Dates: start: 20060702, end: 20080501

REACTIONS (3)
  - EMOTIONAL DISORDER [None]
  - INAPPROPRIATE AFFECT [None]
  - SOCIAL AVOIDANT BEHAVIOUR [None]
